FAERS Safety Report 5441368-7 (Version None)
Quarter: 2007Q3

REPORT INFORMATION
  Report Type: 
  Country: None (occurrence: None)
  Receive Date: 20070903
  Receipt Date: 20070828
  Transmission Date: 20080115
  Serious: Yes (Hospitalization, Other)
  Sender: FDA-Public Use
  Company Number: PHEH2007US11504

PATIENT
  Age: 23 Year
  Sex: Male
  Weight: 30.385 kg

DRUGS (5)
  1. GLEEVEC [Suspect]
     Indication: CHRONIC MYELOID LEUKAEMIA
     Dosage: 400 MG, QD
     Route: 048
     Dates: start: 20070331
  2. GLEEVEC [Suspect]
     Dosage: 600 MG, QD
     Route: 048
     Dates: start: 20070503
  3. GLEEVEC [Suspect]
     Dosage: 800 MG, QD
     Route: 048
     Dates: start: 20070509, end: 20070725
  4. GLEEVEC [Suspect]
     Dosage: 500MG, QD
     Dates: start: 20070426, end: 20070502
  5. ALLOPURINOL [Concomitant]

REACTIONS (12)
  - DRY SKIN [None]
  - IDIOPATHIC THROMBOCYTOPENIC PURPURA [None]
  - IRON BINDING CAPACITY TOTAL DECREASED [None]
  - OEDEMA PERIPHERAL [None]
  - PAIN IN EXTREMITY [None]
  - PARAESTHESIA [None]
  - PLATELET COUNT DECREASED [None]
  - RASH [None]
  - THROMBOSIS [None]
  - VENOUS OCCLUSION [None]
  - VISUAL DISTURBANCE [None]
  - WEIGHT DECREASED [None]
